FAERS Safety Report 11458408 (Version 4)
Quarter: 2015Q4

REPORT INFORMATION
  Report Type: Report from Study
  Country: US (occurrence: US)
  Receive Date: 20150904
  Receipt Date: 20151015
  Transmission Date: 20160304
  Serious: Yes (Hospitalization, Other)
  Sender: FDA-Public Use
  Company Number: US-JNJFOC-20150823632

PATIENT
  Age: 55 Year
  Sex: Female
  Weight: 53.07 kg

DRUGS (8)
  1. CLARITIN [Concomitant]
     Active Substance: LORATADINE
     Route: 065
  2. TRAMADOL. [Concomitant]
     Active Substance: TRAMADOL
     Route: 065
  3. CIPROFLOXACIN HCL [Concomitant]
     Active Substance: CIPROFLOXACIN HYDROCHLORIDE
     Indication: INFECTION
     Route: 065
     Dates: start: 20150518
  4. ZOFRAN [Concomitant]
     Active Substance: ONDANSETRON HYDROCHLORIDE
     Route: 065
  5. SIMPONI [Suspect]
     Active Substance: GOLIMUMAB
     Indication: RHEUMATOID ARTHRITIS
     Route: 058
     Dates: start: 20121101, end: 20150518
  6. CELEBREX [Concomitant]
     Active Substance: CELECOXIB
     Route: 065
  7. ARAVA [Concomitant]
     Active Substance: LEFLUNOMIDE
     Indication: RHEUMATOID ARTHRITIS
     Route: 065
  8. VITAMIN D2 [Concomitant]
     Active Substance: ERGOCALCIFEROL
     Dosage: 50000 UNITS
     Route: 065

REACTIONS (2)
  - Myocardial infarction [Recovered/Resolved]
  - Pyelonephritis [Unknown]

NARRATIVE: CASE EVENT DATE: 20150519
